APPROVED DRUG PRODUCT: NITAZOXANIDE
Active Ingredient: NITAZOXANIDE
Strength: 500MG
Dosage Form/Route: TABLET;ORAL
Application: A213820 | Product #001 | TE Code: AB
Applicant: RISING PHARMA HOLDINGS INC
Approved: Nov 27, 2020 | RLD: No | RS: Yes | Type: RX